FAERS Safety Report 24548670 (Version 1)
Quarter: 2024Q4

REPORT INFORMATION
  Report Type: Spontaneous
  Country: US (occurrence: None)
  Receive Date: 20241023
  Receipt Date: 20241023
  Transmission Date: 20250114
  Serious: No
  Sender: Public
  Company Number: None

PATIENT
  Age: 44 Year
  Sex: Female

DRUGS (1)
  1. NALTREXONE [Suspect]
     Active Substance: NALTREXONE
     Indication: Alcohol use disorder
     Dates: start: 20240527, end: 20240529

REACTIONS (7)
  - Angioedema [None]
  - Vision blurred [None]
  - Dizziness [None]
  - Dyspnoea [None]
  - Rash [None]
  - Paranasal sinus discomfort [None]
  - Therapy interrupted [None]

NARRATIVE: CASE EVENT DATE: 20240529
